FAERS Safety Report 17779969 (Version 1)
Quarter: 2020Q2

REPORT INFORMATION
  Report Type: Spontaneous
  Country: US (occurrence: US)
  Receive Date: 20200513
  Receipt Date: 20200513
  Transmission Date: 20200714
  Serious: Yes (Other)
  Sender: FDA-Public Use
  Company Number: US-PURDUE-USA-2020-0152983

PATIENT
  Sex: Female

DRUGS (1)
  1. OXYCONTIN [Suspect]
     Active Substance: OXYCODONE HYDROCHLORIDE
     Indication: PAIN
     Dosage: UNK
     Route: 048

REACTIONS (8)
  - Myocardial infarction [Unknown]
  - Arthritis [Unknown]
  - Osteoarthritis [Unknown]
  - Mental impairment [Unknown]
  - Hepatic cirrhosis [Unknown]
  - Diabetes mellitus [Unknown]
  - Hypertension [Unknown]
  - Hiatus hernia [Unknown]
